FAERS Safety Report 12939926 (Version 3)
Quarter: 2016Q4

REPORT INFORMATION
  Report Type: Spontaneous
  Country: CA (occurrence: CA)
  Receive Date: 20161115
  Receipt Date: 20161129
  Transmission Date: 20170207
  Serious: Yes (Other)
  Sender: FDA-Public Use
  Company Number: CA-BAUSCH-BL-2016-024351

PATIENT
  Age: 71 Year
  Sex: Male

DRUGS (2)
  1. FLUOROMETHOLONE. [Concomitant]
     Active Substance: FLUOROMETHOLONE
     Indication: POSTOPERATIVE CARE
     Dosage: IN RIGHT EYE.
     Route: 047
     Dates: start: 20151119
  2. LOTEMAX [Suspect]
     Active Substance: LOTEPREDNOL ETABONATE
     Indication: EYE DISORDER
     Dosage: TAKE HALF INCH LONG PIECE AT BEDTIME AND AS NEEDED (ONLY TOOK AT BEDTIME).
     Dates: start: 20151126, end: 20160420

REACTIONS (3)
  - Incorrect drug administration duration [Recovered/Resolved]
  - Visual acuity reduced [Unknown]
  - Intraocular pressure increased [Recovered/Resolved]

NARRATIVE: CASE EVENT DATE: 20160420
